FAERS Safety Report 7736681-4 (Version None)
Quarter: 2011Q3

REPORT INFORMATION
  Report Type: 
  Country: None (occurrence: None)
  Receive Date: 20110908
  Receipt Date: 20110829
  Transmission Date: 20111222
  Serious: Yes (Other)
  Sender: FDA-Public Use
  Company Number: JP-JNJFOC-20110901085

PATIENT
  Age: 84 Year
  Sex: Male

DRUGS (4)
  1. TOPIRAMATE [Suspect]
     Route: 048
     Dates: start: 20100731
  2. TOPIRAMATE [Suspect]
     Route: 048
     Dates: start: 20100601, end: 20100730
  3. TOPIRAMATE [Suspect]
     Indication: EPILEPSY
     Route: 048
     Dates: start: 20100508, end: 20100531
  4. TOPIRAMATE [Suspect]
     Route: 048
     Dates: start: 20100426, end: 20100507

REACTIONS (1)
  - RENAL IMPAIRMENT [None]
